FAERS Safety Report 5762248-3 (Version None)
Quarter: 2008Q2

REPORT INFORMATION
  Report Type: 
  Country: None (occurrence: None)
  Receive Date: 20080609
  Receipt Date: 20080529
  Transmission Date: 20081010
  Serious: Yes (Hospitalization, Other)
  Sender: FDA-Public Use
  Company Number: US-KINGPHARMUSA00001-K200800612

PATIENT

DRUGS (5)
  1. ALTACE [Suspect]
     Indication: ESSENTIAL HYPERTENSION
     Dosage: UNK, UNK
     Dates: start: 20080222, end: 20080223
  2. ALTACE [Suspect]
     Indication: TRANSIENT ISCHAEMIC ATTACK
     Dosage: UNK, UNK
     Dates: start: 20080224, end: 20080224
  3. ESIDRIX [Concomitant]
     Dosage: UNK, UNK
  4. TOTALIP [Concomitant]
     Dosage: UNK, UNK
  5. ASPIRIN [Concomitant]
     Dosage: UNK, UNK

REACTIONS (4)
  - LARYNGEAL OEDEMA [None]
  - MALAISE [None]
  - PRURITUS [None]
  - TRANSIENT ISCHAEMIC ATTACK [None]
